FAERS Safety Report 7035485-8 (Version None)
Quarter: 2010Q4

REPORT INFORMATION
  Report Type: 
  Country: None (occurrence: None)
  Receive Date: 20101008
  Receipt Date: 20100927
  Transmission Date: 20110411
  Serious: Yes (Other)
  Sender: FDA-Public Use
  Company Number: JP-PFIZER INC-2010095636

PATIENT
  Age: 87 Year
  Sex: Female

DRUGS (12)
  1. LYRICA [Suspect]
     Indication: POST HERPETIC NEURALGIA
     Dosage: 150 MG, DAILY
     Route: 048
     Dates: start: 20100713, end: 20100720
  2. LASIX [Suspect]
     Dosage: 20 MG, 1X/DAY
     Route: 048
     Dates: start: 20091104
  3. TAKEPRON [Concomitant]
     Dosage: 15 MG DAILY
     Route: 048
     Dates: start: 20070709
  4. NORVASC [Concomitant]
     Dosage: 5 MG, DAILY
     Route: 048
     Dates: start: 20070709
  5. PERSANTIN [Concomitant]
     Dosage: 37.5 MG, DAILY
     Route: 048
     Dates: start: 20070709
  6. SELBEX [Concomitant]
     Dosage: 150 MG, DAILY
     Route: 048
     Dates: start: 20070709
  7. BONALON [Concomitant]
     Dosage: 35 MG, DAILY
     Route: 048
     Dates: start: 20091104
  8. SEIBULE [Concomitant]
     Dosage: 150 MG, DAILY
     Route: 048
     Dates: start: 20091021
  9. LOXONIN [Concomitant]
     Dosage: 180 MG, DAILY
     Route: 048
     Dates: start: 20091208
  10. KETOPROFEN [Concomitant]
     Dosage: 20 MG, DAILY
     Route: 062
     Dates: start: 20070802
  11. DEPAKENE [Concomitant]
     Dosage: 100 MG, 2X/DAY
     Route: 048
     Dates: start: 20100518
  12. MAGNESIUM OXIDE [Concomitant]
     Dosage: 1 G, 3X/DAY
     Dates: start: 20070802

REACTIONS (3)
  - HEAT EXHAUSTION [None]
  - HEAT ILLNESS [None]
  - HYPERKALAEMIA [None]
